FAERS Safety Report 19651534 (Version 3)
Quarter: 2021Q4

REPORT INFORMATION
  Report Type: Spontaneous
  Country: US (occurrence: US)
  Receive Date: 20210803
  Receipt Date: 20211126
  Transmission Date: 20220303
  Serious: No
  Sender: FDA-Public Use
  Company Number: US-ELI_LILLY_AND_COMPANY-US202107004980

PATIENT
  Sex: Female

DRUGS (6)
  1. LYUMJEV [Suspect]
     Active Substance: INSULIN LISPRO-AABC
     Indication: Type 1 diabetes mellitus
     Dosage: UNK UNK, UNKNOWN
     Route: 065
     Dates: start: 20210711
  2. LYUMJEV [Suspect]
     Active Substance: INSULIN LISPRO-AABC
     Dosage: 6.8 U, EACH MORNING (AT BREAKFAST TIME)
     Route: 065
  3. LYUMJEV [Suspect]
     Active Substance: INSULIN LISPRO-AABC
     Dosage: 8 U, DAILY (AT DINNER)
     Route: 065
  4. LYUMJEV [Suspect]
     Active Substance: INSULIN LISPRO-AABC
     Dosage: UNK UNK, UNKNOWN
     Route: 065
  5. HUMALOG [Suspect]
     Active Substance: INSULIN LISPRO
     Indication: Type 1 diabetes mellitus
     Dosage: UNK UNK, UNKNOWN
     Route: 065
     Dates: start: 1991
  6. HUMULIN R [Concomitant]
     Active Substance: INSULIN HUMAN
     Indication: Type 1 diabetes mellitus

REACTIONS (7)
  - Blood glucose increased [Recovering/Resolving]
  - Decreased appetite [Unknown]
  - Infusion site scar [Unknown]
  - Infusion site pain [Not Recovered/Not Resolved]
  - Infusion site erythema [Unknown]
  - Therapeutic response delayed [Unknown]
  - Wrong technique in product usage process [Recovered/Resolved]
